FAERS Safety Report 23944826 (Version 7)
Quarter: 2025Q4

REPORT INFORMATION
  Report Type: Report from Study
  Country: JP (occurrence: JP)
  Receive Date: 20240606
  Receipt Date: 20251112
  Transmission Date: 20260118
  Serious: Yes (Hospitalization, Other)
  Sender: ROCHE
  Company Number: JP-CHUGAI-2024014742AA

PATIENT
  Age: 45 Year
  Sex: Female
  Weight: 49 kg

DRUGS (1)
  1. TECENTRIQ [Suspect]
     Active Substance: ATEZOLIZUMAB
     Indication: Non-small cell lung cancer
     Dosage: UNK
     Route: 042
     Dates: start: 20240416, end: 20240416

REACTIONS (10)
  - Oropharyngeal pain [Unknown]
  - Lymphadenopathy [Unknown]
  - White blood cell count decreased [Recovered/Resolved]
  - Platelet count decreased [Recovered/Resolved]
  - Anaemia [Recovering/Resolving]
  - Pancytopenia [Recovered/Resolved]
  - Haemophagocytic lymphohistiocytosis [Unknown]
  - Liver disorder [Unknown]
  - Aspartate aminotransferase increased [Recovered/Resolved]
  - Alanine aminotransferase increased [Recovered/Resolved]

NARRATIVE: CASE EVENT DATE: 20240423
